FAERS Safety Report 9122754 (Version 1)
Quarter: 2013Q1

REPORT INFORMATION
  Report Type: Spontaneous
  Country: US (occurrence: None)
  Receive Date: 20130225
  Receipt Date: 20130225
  Transmission Date: 20140127
  Serious: Yes (Hospitalization, Disabling)
  Sender: FDA-Public Use
  Company Number: None

PATIENT
  Age: 44 Year
  Sex: Male
  Weight: 72.58 kg

DRUGS (1)
  1. PREDNISONE [Suspect]
     Indication: URTICARIA
     Dosage: 22 TABLETS BURST AND TAPER DAILY PO
     Dates: start: 20100624, end: 20111208

REACTIONS (1)
  - Osteonecrosis [None]
